FAERS Safety Report 7769576-0 (Version None)
Quarter: 2011Q3

REPORT INFORMATION
  Report Type: 
  Country: None (occurrence: None)
  Receive Date: 20110922
  Receipt Date: 20100827
  Transmission Date: 20111222
  Serious: No
  Sender: FDA-Public Use
  Company Number: US-ASTRAZENECA-2007UW11501

PATIENT
  Age: 42 Year
  Sex: Female
  Weight: 81.6 kg

DRUGS (21)
  1. SEROQUEL [Suspect]
     Indication: DEPRESSION
     Route: 048
     Dates: start: 20031201, end: 20050401
  2. SEROQUEL [Suspect]
     Indication: INSOMNIA
     Route: 048
     Dates: start: 20031201, end: 20050401
  3. DARVOCET [Concomitant]
     Indication: NECK PAIN
     Dates: start: 19940126
  4. AVAPRO [Concomitant]
     Dates: start: 19990323
  5. ZOLOFT [Concomitant]
     Dates: start: 20030806
  6. PROCARDIA [Concomitant]
     Indication: TACHYCARDIA
     Dates: start: 19940126
  7. XANAX [Concomitant]
     Dates: start: 20040717
  8. SULFASALAZINE [Concomitant]
     Dates: start: 19970429
  9. SEROQUEL [Suspect]
     Dosage: 25 MG - 200 MG, AT NIGHT
     Route: 048
     Dates: start: 20031209, end: 20050819
  10. INDERAL [Concomitant]
     Indication: TACHYCARDIA
     Dates: start: 19940126
  11. RISPERDAL [Concomitant]
     Dates: start: 20030801
  12. LEXAPRO [Concomitant]
     Dates: start: 20050210
  13. ORTHO CYCLEN-28 [Concomitant]
     Dosage: 0.25/ 35 MG
     Dates: start: 20010710
  14. PAXIL [Concomitant]
     Dates: start: 19971006
  15. SEROQUEL [Suspect]
     Dosage: 25 MG - 200 MG, AT NIGHT
     Route: 048
     Dates: start: 20031209, end: 20050819
  16. AMBIEN [Concomitant]
     Dates: start: 19970909
  17. IMITREX [Concomitant]
     Dates: start: 19980325
  18. TRAZODONE HYDROCHLORIDE [Concomitant]
     Dates: start: 20030721
  19. SEROQUEL [Suspect]
     Indication: ANXIETY
     Route: 048
     Dates: start: 20031201, end: 20050401
  20. SEROQUEL [Suspect]
     Dosage: 25 MG - 200 MG, AT NIGHT
     Route: 048
     Dates: start: 20031209, end: 20050819
  21. CLONIDINE [Concomitant]
     Dates: start: 20041206

REACTIONS (5)
  - TYPE 2 DIABETES MELLITUS [None]
  - BLOOD CHOLESTEROL INCREASED [None]
  - OBESITY [None]
  - BLOOD TRIGLYCERIDES INCREASED [None]
  - HYPERLIPIDAEMIA [None]
